FAERS Safety Report 4800926-0 (Version None)
Quarter: 2005Q4

REPORT INFORMATION
  Report Type: 
  Country: None (occurrence: None)
  Receive Date: 20051011
  Receipt Date: 20050923
  Transmission Date: 20060501
  Serious: Yes (Death, Hospitalization)
  Sender: FDA-Public Use
  Company Number: 2005P1000254

PATIENT
  Age: 51 Year
  Sex: Male

DRUGS (11)
  1. RETEVASE [Suspect]
     Indication: ACUTE MYOCARDIAL INFARCTION
     Dosage: IV
     Route: 042
     Dates: start: 20050318
  2. ABCIXIMAB (ABCIXIMAB) [Suspect]
     Indication: ACUTE MYOCARDIAL INFARCTION
     Dosage: IV
     Route: 042
     Dates: start: 20050318
  3. ATENOLOL [Concomitant]
  4. LISINOPRIL [Concomitant]
  5. ISOSORBIDE MONONITRATE [Concomitant]
  6. NICORANDIL [Concomitant]
  7. DOXAZOSIN [Concomitant]
  8. ROSUVASTATIN [Concomitant]
  9. EZETIMIBE [Concomitant]
  10. ASPIRIN [Concomitant]
  11. CLOPIDOGREL [Concomitant]

REACTIONS (8)
  - BLOOD PRESSURE DECREASED [None]
  - CARDIAC ARREST [None]
  - FALL [None]
  - LOWER RESPIRATORY TRACT INFECTION [None]
  - MYOCARDIAL INFARCTION [None]
  - RENAL IMPAIRMENT [None]
  - STAPHYLOCOCCAL INFECTION [None]
  - VENTRICULAR FIBRILLATION [None]
